FAERS Safety Report 24346215 (Version 1)
Quarter: 2024Q3

REPORT INFORMATION
  Report Type: Spontaneous
  Country: DE (occurrence: DE)
  Receive Date: 20240921
  Receipt Date: 20240921
  Transmission Date: 20241016
  Serious: Yes (Other)
  Sender: TEVA
  Company Number: DE-TEVA-VS-3244325

PATIENT
  Age: 67 Year
  Sex: Female

DRUGS (2)
  1. IBUPROFEN [Suspect]
     Active Substance: IBUPROFEN
     Indication: Pain
     Dosage: RATIOPHARM 200 MG AKUT SCHMERZTABLETTEN
     Route: 048
  2. IBUPROFEN [Suspect]
     Active Substance: IBUPROFEN
     Indication: Spinal disorder
     Dosage: ABZ 200 MG FILMTABLETTEN
     Route: 048

REACTIONS (2)
  - Cyanosis [Recovered/Resolved]
  - Angiopathy [Unknown]
